FAERS Safety Report 16357029 (Version 5)
Quarter: 2020Q4

REPORT INFORMATION
  Report Type: Spontaneous
  Country: US (occurrence: US)
  Receive Date: 20190527
  Receipt Date: 20201005
  Transmission Date: 20210113
  Serious: Yes (Other)
  Sender: FDA-Public Use
  Company Number: US-GILEAD-2019-0409401

PATIENT
  Age: 45 Year
  Sex: Male
  Weight: 79.37 kg

DRUGS (44)
  1. TRUVADA [Suspect]
     Active Substance: EMTRICITABINE\TENOFOVIR DISOPROXIL FUMARATE
     Dosage: UNK
     Route: 065
     Dates: start: 20111029, end: 2013
  2. LEVOTHYROXINE. [Concomitant]
     Active Substance: LEVOTHYROXINE
  3. PREDNISONE. [Concomitant]
     Active Substance: PREDNISONE
  4. TRIZIVIR [Concomitant]
     Active Substance: ABACAVIR SULFATE\LAMIVUDINE\ZIDOVUDINE
  5. ZERIT [Concomitant]
     Active Substance: STAVUDINE
  6. DIDANOSINE. [Concomitant]
     Active Substance: DIDANOSINE
  7. NORVIR [Concomitant]
     Active Substance: RITONAVIR
  8. CELEXA [CELECOXIB] [Concomitant]
     Active Substance: CELECOXIB
  9. RANITIDINE. [Concomitant]
     Active Substance: RANITIDINE
  10. SERTRALINE [Concomitant]
     Active Substance: SERTRALINE HYDROCHLORIDE
  11. ATRIPLA [Suspect]
     Active Substance: EFAVIRENZ\EMTRICITABINE\TENOFOVIR DISOPROXIL FUMARATE
     Dosage: UNK
     Route: 048
     Dates: start: 20110816
  12. AMOXICILLIN. [Concomitant]
     Active Substance: AMOXICILLIN
  13. EPIVIR [Concomitant]
     Active Substance: LAMIVUDINE
  14. REYATAZ [Concomitant]
     Active Substance: ATAZANAVIR SULFATE
  15. TIVICAY [Concomitant]
     Active Substance: DOLUTEGRAVIR SODIUM
  16. ZIAGEN [Concomitant]
     Active Substance: ABACAVIR SULFATE
  17. KALETRA [Concomitant]
     Active Substance: LOPINAVIR\RITONAVIR
  18. PREZCOBIX [Concomitant]
     Active Substance: COBICISTAT\DARUNAVIR ETHANOLATE
  19. PLAVIX [Concomitant]
     Active Substance: CLOPIDOGREL BISULFATE
  20. AMITRIPTYLINE [Concomitant]
     Active Substance: AMITRIPTYLINE
  21. ACYCLOVIR [ACICLOVIR] [Concomitant]
     Active Substance: ACYCLOVIR
  22. PREZISTA [Concomitant]
     Active Substance: DARUNAVIR ETHANOLATE
  23. SELZENTRY [Concomitant]
     Active Substance: MARAVIROC
  24. VIREAD [Suspect]
     Active Substance: TENOFOVIR DISOPROXIL FUMARATE
     Indication: HIV INFECTION
     Dosage: UNK
     Route: 065
     Dates: start: 20040106, end: 20080514
  25. ATRIPLA [Suspect]
     Active Substance: EFAVIRENZ\EMTRICITABINE\TENOFOVIR DISOPROXIL FUMARATE
     Indication: HIV INFECTION
     Dosage: UNK
     Route: 048
     Dates: start: 20080504, end: 20090626
  26. ATRIPLA [Suspect]
     Active Substance: EFAVIRENZ\EMTRICITABINE\TENOFOVIR DISOPROXIL FUMARATE
     Dosage: UNK
     Route: 048
     Dates: start: 20090825, end: 20110518
  27. ATRIPLA [Suspect]
     Active Substance: EFAVIRENZ\EMTRICITABINE\TENOFOVIR DISOPROXIL FUMARATE
     Dosage: UNK
     Route: 065
     Dates: start: 20080504, end: 20110816
  28. TRUVADA [Suspect]
     Active Substance: EMTRICITABINE\TENOFOVIR DISOPROXIL FUMARATE
     Indication: HIV INFECTION
     Dosage: UNK
     Route: 048
     Dates: start: 2001, end: 2013
  29. ACETAMINOPHEN. [Concomitant]
     Active Substance: ACETAMINOPHEN
  30. ASPIRIN [ACETYLSALICYLIC ACID] [Concomitant]
     Active Substance: ASPIRIN
  31. BACTRIM [Concomitant]
     Active Substance: SULFAMETHOXAZOLE\TRIMETHOPRIM
  32. INTELENCE [Concomitant]
     Active Substance: ETRAVIRINE
  33. RETROVIR [Concomitant]
     Active Substance: ZIDOVUDINE
  34. SUSTIVA [Concomitant]
     Active Substance: EFAVIRENZ
  35. VIRACEPT [Concomitant]
     Active Substance: NELFINAVIR MESYLATE
  36. AMBIEN [Concomitant]
     Active Substance: ZOLPIDEM TARTRATE
  37. COMPLERA [Concomitant]
     Active Substance: EMTRICITABINE\RILPIVIRINE HYDROCHLORIDE\TENOFOVIR DISOPROXIL FUMARATE
  38. CRIXIVAN [Concomitant]
     Active Substance: INDINAVIR SULFATE
  39. LEVOTHYROXINE. [Concomitant]
     Active Substance: LEVOTHYROXINE
  40. PROMETHAZINE [Concomitant]
     Active Substance: PROMETHAZINE HYDROCHLORIDE
  41. TRAZODONE [Concomitant]
     Active Substance: TRAZODONE HYDROCHLORIDE
  42. ATORVASTATIN [Concomitant]
     Active Substance: ATORVASTATIN
  43. LEXIVA [Concomitant]
     Active Substance: FOSAMPRENAVIR CALCIUM
  44. FLONASE [Concomitant]
     Active Substance: FLUTICASONE PROPIONATE

REACTIONS (6)
  - Economic problem [Not Recovered/Not Resolved]
  - Anxiety [Not Recovered/Not Resolved]
  - Emotional distress [Not Recovered/Not Resolved]
  - Chronic kidney disease [Not Recovered/Not Resolved]
  - Anhedonia [Not Recovered/Not Resolved]
  - Pain [Not Recovered/Not Resolved]

NARRATIVE: CASE EVENT DATE: 20130311
